FAERS Safety Report 7382527-6 (Version None)
Quarter: 2011Q1

REPORT INFORMATION
  Report Type: 
  Country: None (occurrence: None)
  Receive Date: 20110329
  Receipt Date: 20110322
  Transmission Date: 20110831
  Serious: Yes (Death, Hospitalization, Other)
  Sender: FDA-Public Use
  Company Number: US-BAYER-2011-018325

PATIENT
  Sex: Male

DRUGS (2)
  1. NEXAVAR [Suspect]
     Indication: HEPATIC NEOPLASM MALIGNANT NON-RESECTABLE
     Dosage: 400 MG, BID
     Route: 048
     Dates: start: 20110203, end: 20110213
  2. NEXAVAR [Suspect]
     Dosage: 200 MG ONCE A DAY
     Route: 048
     Dates: start: 20110214, end: 20110311

REACTIONS (5)
  - HEPATIC FAILURE [None]
  - RENAL FAILURE [None]
  - HEPATIC ENZYME INCREASED [None]
  - HAEMATOCHEZIA [None]
  - DEATH [None]
